FAERS Safety Report 6834598-0 (Version None)
Quarter: 2010Q3

REPORT INFORMATION
  Report Type: 
  Country: None (occurrence: None)
  Receive Date: 20100712
  Receipt Date: 20070417
  Transmission Date: 20110219
  Serious: No
  Sender: FDA-Public Use
  Company Number: US-PFIZER INC-2007033285

PATIENT
  Age: 75 Year
  Sex: Male
  Weight: 88.45 kg

DRUGS (6)
  1. CHANTIX [Suspect]
     Indication: SMOKING CESSATION THERAPY
     Dates: start: 20070101
  2. ALLERGY MEDICATION [Concomitant]
     Indication: MULTIPLE ALLERGIES
  3. ALPRAZOLAM [Concomitant]
     Indication: ANXIETY
  4. GUAIFENESIN W/DEXTROMETHORPHAN [Concomitant]
     Indication: PULMONARY CONGESTION
  5. OXYGEN [Concomitant]
  6. KLONOPIN [Concomitant]

REACTIONS (5)
  - ASTHENIA [None]
  - DIARRHOEA [None]
  - DYSPEPSIA [None]
  - FATIGUE [None]
  - MEDICATION ERROR [None]
